FAERS Safety Report 9381000 (Version 1)
Quarter: 2013Q3

REPORT INFORMATION
  Report Type: Spontaneous
  Country: IT (occurrence: IT)
  Receive Date: 20130703
  Receipt Date: 20130703
  Transmission Date: 20140515
  Serious: Yes (Hospitalization, Other)
  Sender: FDA-Public Use
  Company Number: IT-BRISTOL-MYERS SQUIBB COMPANY-17461252

PATIENT
  Age: 93 Year
  Sex: Female

DRUGS (10)
  1. COUMADIN TABS 5 MG [Suspect]
     Indication: ATRIAL FIBRILLATION
     Dosage: 1DF: 1 UNIT
     Route: 048
     Dates: start: 20120101, end: 20130205
  2. LEVOFLOXACIN [Interacting]
     Indication: BRONCHITIS
     Route: 048
     Dates: start: 20130130, end: 20130203
  3. LASITONE [Concomitant]
     Indication: CARDIAC FAILURE
     Dosage: 1DF: 25+37MG 1 UNIT
     Route: 048
     Dates: start: 20100101, end: 20130205
  4. LASIX [Concomitant]
     Indication: CARDIAC FAILURE
     Dosage: 25 MG TABLETS, 1DF: 1 UNIT
     Route: 048
     Dates: start: 20100101, end: 20130205
  5. DEPONIT [Concomitant]
     Indication: MYOCARDIAL ISCHAEMIA
     Dosage: 5MG/24H TRANSDERMAL PATCHES, 1 DF: 1 UNIT
     Route: 003
     Dates: start: 20100101, end: 20130205
  6. XALATAN [Concomitant]
     Indication: GLAUCOMA
     Dosage: 1DF: 1 DROP, 0.005% EYEWASH SOLUTION
     Route: 047
     Dates: start: 20100101, end: 20130205
  7. PANTORC [Concomitant]
     Indication: MALARIA PROPHYLAXIS
     Dosage: 1DF: 1 UNIT, 20 MG TABLETS
     Route: 048
     Dates: start: 20110201, end: 20130205
  8. AUGMENTIN [Concomitant]
     Indication: BRONCHITIS
     Dosage: 1DF: 3 UNITS, 875/125 MG TABLETS
     Route: 048
     Dates: start: 20130125, end: 20130205
  9. COSOPT [Concomitant]
     Indication: GLAUCOMA
     Dosage: 1DF: 1 DROP, 2%+0.5% 5 ML EYEWASH SOLUTION
     Route: 047
     Dates: start: 20100101, end: 20130205
  10. DEPAKIN [Concomitant]
     Indication: PETIT MAL EPILEPSY
     Dosage: 200 MG/ML ORAL SOLUTION
     Route: 048
     Dates: start: 19980101, end: 20130205

REACTIONS (2)
  - International normalised ratio increased [Recovered/Resolved]
  - Drug interaction [Unknown]
